FAERS Safety Report 6638254-3 (Version None)
Quarter: 2010Q1

REPORT INFORMATION
  Report Type: 
  Country: None (occurrence: None)
  Receive Date: 20100317
  Receipt Date: 20100222
  Transmission Date: 20100710
  Serious: Yes (Other)
  Sender: FDA-Public Use
  Company Number: US-ROCHE-685053

PATIENT
  Sex: Female
  Weight: 59 kg

DRUGS (5)
  1. BONIVA [Suspect]
     Indication: OSTEOPENIA
     Dosage: OTHER INDICATION: OSTEOPOROSIS
     Route: 048
     Dates: start: 20100205
  2. FLOVENT [Concomitant]
  3. FLONASE [Concomitant]
  4. PREVACID [Concomitant]
  5. LOVAZA [Concomitant]

REACTIONS (6)
  - FACIAL PAIN [None]
  - ORAL HERPES [None]
  - ORAL PAIN [None]
  - ORAL PUSTULE [None]
  - PAIN IN JAW [None]
  - TOOTHACHE [None]
